FAERS Safety Report 8447183-4 (Version None)
Quarter: 2012Q2

REPORT INFORMATION
  Report Type: 
  Country: None (occurrence: None)
  Receive Date: 20120619
  Receipt Date: 20110919
  Transmission Date: 20120825
  Serious: No
  Sender: FDA-Public Use
  Company Number: US-PFIZER INC-K201101106

PATIENT
  Sex: Female
  Weight: 54.875 kg

DRUGS (3)
  1. LEVOXYL [Suspect]
     Indication: HYPOTHYROIDISM
     Dosage: 112 UG, 1X/DAY
     Route: 048
     Dates: start: 20090101, end: 20110501
  2. ASPIRIN [Concomitant]
     Indication: ANTIPHOSPHOLIPID SYNDROME
     Dosage: 350 MG, 1X/DAY
  3. LEVOXYL [Suspect]
     Dosage: 100 UG, 1X/DAY
     Route: 048
     Dates: start: 20110501, end: 20110919

REACTIONS (12)
  - BONE PAIN [None]
  - BACK PAIN [None]
  - OVERDOSE [None]
  - HYPOCALCAEMIA [None]
  - HYPOKALAEMIA [None]
  - BLOOD PRESSURE INCREASED [None]
  - ULTRASOUND SCAN ABNORMAL [None]
  - WEIGHT DECREASED [None]
  - OSTEOARTHRITIS [None]
  - BLOOD THYROID STIMULATING HORMONE DECREASED [None]
  - GROIN PAIN [None]
  - NECK PAIN [None]
